FAERS Safety Report 6311886-8 (Version None)
Quarter: 2009Q3

REPORT INFORMATION
  Report Type: 
  Country: None (occurrence: None)
  Receive Date: 20090817
  Receipt Date: 20090810
  Transmission Date: 20100115
  Serious: Yes (Death, Hospitalization, Other)
  Sender: FDA-Public Use
  Company Number: GB-BRISTOL-MYERS SQUIBB COMPANY-14735427

PATIENT
  Sex: Male

DRUGS (3)
  1. DIDANOSINE [Interacting]
     Indication: ANTIRETROVIRAL THERAPY
     Dosage: STOPPED IN NOV2001 AND RESTARTED IN DEC2001 250MG
     Dates: start: 20001101, end: 20020101
  2. STAVUDINE [Suspect]
     Indication: ANTIRETROVIRAL THERAPY
     Dosage: STOPPED IN NOV2001 AND RESTARTED IN DEC2001
     Dates: end: 20020101
  3. TENOFOVIR DISOPROXIL FUMARATE [Interacting]
     Indication: ANTIRETROVIRAL THERAPY
     Dates: start: 20011201, end: 20020101

REACTIONS (3)
  - ACUTE RESPIRATORY DISTRESS SYNDROME [None]
  - DRUG INTERACTION [None]
  - PANCREATITIS ACUTE [None]
